FAERS Safety Report 13248215 (Version 1)
Quarter: 2017Q1

REPORT INFORMATION
  Report Type: Spontaneous
  Country: US (occurrence: US)
  Receive Date: 20170217
  Receipt Date: 20170217
  Transmission Date: 20170428
  Serious: No
  Sender: FDA-Public Use
  Company Number: US-009507513-1206USA01899

PATIENT

DRUGS (1)
  1. JANUMET XR [Suspect]
     Active Substance: METFORMIN HYDROCHLORIDE\SITAGLIPTIN PHOSPHATE
     Dosage: 2000MG/100
     Route: 048

REACTIONS (4)
  - Diarrhoea [Recovered/Resolved]
  - Drug prescribing error [Unknown]
  - Overdose [Unknown]
  - Epistaxis [Recovered/Resolved]
